FAERS Safety Report 4717140-X (Version None)
Quarter: 2005Q3

REPORT INFORMATION
  Report Type: 
  Country: None (occurrence: None)
  Receive Date: 20050719
  Receipt Date: 20050718
  Transmission Date: 20060218
  Serious: Yes (Other)
  Sender: FDA-Public Use
  Company Number: US-GLAXOSMITHKLINE-A0566672A

PATIENT
  Age: 53 Year
  Sex: Female

DRUGS (9)
  1. LAMICTAL [Suspect]
     Indication: MAJOR DEPRESSION
     Route: 048
  2. WELLBUTRIN [Concomitant]
  3. CYTOMEL [Concomitant]
  4. ESTROGEN [Concomitant]
  5. PROGESTERONE [Concomitant]
  6. TESTOSTERONE [Concomitant]
  7. PROPRANOLOL [Concomitant]
  8. HYDROCHLOROTHIAZIDE [Concomitant]
  9. POTASSIUM CHLORIDE [Concomitant]

REACTIONS (5)
  - BLINDNESS [None]
  - CATARACT [None]
  - DRUG INEFFECTIVE [None]
  - EXFOLIATIVE RASH [None]
  - SUICIDAL IDEATION [None]
